FAERS Safety Report 21660083 (Version 1)
Quarter: 2022Q4

REPORT INFORMATION
  Report Type: Other
  Country: AU (occurrence: AU)
  Receive Date: 20221130
  Receipt Date: 20221130
  Transmission Date: 20230113
  Serious: Yes (Other)
  Sender: FDA-Public Use
  Company Number: AU-CELLTRION INC.-2022AU019789

PATIENT

DRUGS (4)
  1. INFLIXIMAB [Suspect]
     Active Substance: INFLIXIMAB
     Indication: Product used for unknown indication
  2. PANTOPRAZOLE [Suspect]
     Active Substance: PANTOPRAZOLE
     Indication: Product used for unknown indication
  3. PEMBROLIZUMAB [Concomitant]
     Active Substance: PEMBROLIZUMAB
  4. PREDNISOLONE [Concomitant]
     Active Substance: PREDNISOLONE

REACTIONS (6)
  - Gastrointestinal haemorrhage [Unknown]
  - Acinetobacter infection [Unknown]
  - Toxic epidermal necrolysis [Unknown]
  - Hypoglycaemia [Unknown]
  - Hypotension [Unknown]
  - Off label use [Unknown]
